FAERS Safety Report 21059226 (Version 1)
Quarter: 2022Q3

REPORT INFORMATION
  Report Type: Spontaneous
  Country: US (occurrence: US)
  Receive Date: 20220708
  Receipt Date: 20220708
  Transmission Date: 20221026
  Serious: Yes (Other)
  Sender: FDA-Public Use
  Company Number: US-JNJFOC-20220706132

PATIENT
  Sex: Female

DRUGS (2)
  1. CANAGLIFLOZIN [Suspect]
     Active Substance: CANAGLIFLOZIN
     Indication: Product used for unknown indication
     Route: 048
  2. LEVOXYL [Suspect]
     Active Substance: LEVOTHYROXINE SODIUM
     Indication: Product used for unknown indication
     Route: 065

REACTIONS (10)
  - Blindness [Unknown]
  - Disability [Unknown]
  - Post-acute COVID-19 syndrome [Unknown]
  - Nervous system disorder [Unknown]
  - Glycosylated haemoglobin increased [Unknown]
  - Weight decreased [Unknown]
  - Alopecia [Unknown]
  - Burning sensation [Unknown]
  - Vertigo [Unknown]
  - Presyncope [Unknown]

NARRATIVE: CASE EVENT DATE: 20220101
